FAERS Safety Report 8880566 (Version 2)
Quarter: 2012Q4

REPORT INFORMATION
  Report Type: 
  Country: JP (occurrence: JP)
  Receive Date: 20121101
  Receipt Date: 20121109
  Transmission Date: 20130627
  Serious: No
  Sender: FDA-Public Use
  Company Number: JP-SANOFI-AVENTIS-2012SA079798

PATIENT
  Age: 81 Year
  Sex: Female

DRUGS (8)
  1. ALLEGRA [Suspect]
     Indication: ITCHY SKIN
     Route: 048
     Dates: start: 20121026, end: 20121027
  2. FLUITRAN [Concomitant]
  3. BLOPRESS [Concomitant]
  4. AMLODIPINE [Concomitant]
  5. FUROSEMIDE [Concomitant]
  6. PARIET [Concomitant]
  7. SIMVASTATIN [Concomitant]
  8. LAXATIVES [Concomitant]

REACTIONS (2)
  - Urticaria [Recovered/Resolved]
  - Generalised erythema [Recovered/Resolved]
